FAERS Safety Report 25000508 (Version 2)
Quarter: 2025Q1

REPORT INFORMATION
  Report Type: Spontaneous
  Country: US (occurrence: US)
  Receive Date: 20250222
  Receipt Date: 20250226
  Transmission Date: 20250408
  Serious: No
  Sender: ROCHE
  Company Number: US-ROCHE-10000212453

PATIENT
  Age: 37 Year
  Sex: Female

DRUGS (2)
  1. XOLAIR PFS [Suspect]
     Active Substance: OMALIZUMAB
     Indication: Chronic spontaneous urticaria
     Dosage: 75 MG TWICE IN A MONTH (TOTAL 150 MG) ?TAKING TWO, 75MG PFS TWICE A MONTH FOR TOTAL MONTHLY DOSE OF
     Route: 058
  2. XOLAIR PFS [Suspect]
     Active Substance: OMALIZUMAB
     Dosage: 75 MG TWICE IN A MONTH (TOTAL 150 MG) ?TAKING TWO, 75MG PFS TWICE A MONTH FOR TOTAL MONTHLY DOSE OF
     Route: 058

REACTIONS (2)
  - Injection site reaction [Unknown]
  - Off label use [Unknown]
